FAERS Safety Report 4807990-3 (Version None)
Quarter: 2005Q4

REPORT INFORMATION
  Report Type: 
  Country: None (occurrence: None)
  Receive Date: 20051020
  Receipt Date: 20051012
  Transmission Date: 20060501
  Serious: Yes (Other)
  Sender: FDA-Public Use
  Company Number: 2005RL000142

PATIENT
  Age: 74 Year
  Sex: Male

DRUGS (2)
  1. NIZATIDINE [Suspect]
     Indication: ABDOMINAL DISCOMFORT
     Dosage: 300 MG; QD;
  2. LORNOXICAM (LORNOXICAM) [Suspect]
     Indication: ARTHRALGIA
     Dosage: 12 MG; PRN;

REACTIONS (1)
  - GASTRIC POLYPS [None]
